FAERS Safety Report 24865202 (Version 1)
Quarter: 2025Q1

REPORT INFORMATION
  Report Type: Spontaneous
  Country: FR (occurrence: FR)
  Receive Date: 20250121
  Receipt Date: 20250121
  Transmission Date: 20250409
  Serious: Yes (Hospitalization, Other)
  Sender: AUROBINDO
  Company Number: FR-AFSSAPS-ST20190110

PATIENT
  Age: 38 Year
  Sex: Male

DRUGS (1)
  1. ISOTRETINOIN [Suspect]
     Active Substance: ISOTRETINOIN
     Indication: Acne conglobata
     Route: 048
     Dates: end: 2018

REACTIONS (12)
  - Neck pain [Recovered/Resolved with Sequelae]
  - Enthesopathy [Recovered/Resolved with Sequelae]
  - Nuchal rigidity [Recovered/Resolved with Sequelae]
  - Gait disturbance [Recovered/Resolved with Sequelae]
  - Bone hypertrophy [Recovered/Resolved]
  - Arthralgia [Recovered/Resolved with Sequelae]
  - Back pain [Recovered/Resolved]
  - Myelopathy [Recovered/Resolved]
  - Toxicity to various agents [Recovered/Resolved]
  - Off label use [Unknown]
  - Product use in unapproved indication [Unknown]
  - Product use issue [Unknown]

NARRATIVE: CASE EVENT DATE: 20180101
